FAERS Safety Report 7190905-3 (Version None)
Quarter: 2010Q4

REPORT INFORMATION
  Report Type: 
  Country: None (occurrence: None)
  Receive Date: 20101223
  Receipt Date: 20101223
  Transmission Date: 20110411
  Serious: Yes (Other)
  Sender: FDA-Public Use
  Company Number: CH-TEVA-259766ISR

PATIENT
  Age: 75 Year
  Sex: Male

DRUGS (2)
  1. IFOSFAMIDE [Suspect]
     Indication: SARCOMA
  2. DOXORUBICIN [Suspect]
     Indication: SARCOMA

REACTIONS (1)
  - PNEUMOTHORAX [None]
